FAERS Safety Report 8580257-6 (Version None)
Quarter: 2012Q3

REPORT INFORMATION
  Report Type: 
  Country: None (occurrence: None)
  Receive Date: 20120808
  Receipt Date: 20120724
  Transmission Date: 20120928
  Serious: Yes (Other)
  Sender: FDA-Public Use
  Company Number: CHPA2012US016662

PATIENT
  Age: 62 Year
  Sex: Female

DRUGS (1)
  1. EXCEDRIN (MIGRAINE) [Suspect]
     Indication: PAIN
     Dosage: UNK, UNK
     Route: 048

REACTIONS (7)
  - CEREBROVASCULAR ACCIDENT [None]
  - OFF LABEL USE [None]
  - INTRACRANIAL ANEURYSM [None]
  - DYSPNOEA [None]
  - HAEMORRHAGE INTRACRANIAL [None]
  - GAIT DISTURBANCE [None]
  - HYPERTENSION [None]
